FAERS Safety Report 4315897-3 (Version None)
Quarter: 2004Q1

REPORT INFORMATION
  Report Type: 
  Country: None (occurrence: None)
  Receive Date: 20040311
  Receipt Date: 20040311
  Transmission Date: 20041129
  Serious: Yes (Disabling)
  Sender: FDA-Public Use
  Company Number: None

PATIENT
  Age: 58 Year
  Sex: Male
  Weight: 83.9154 kg

DRUGS (2)
  1. PREDNISONE [Suspect]
     Indication: LOWER RESPIRATORY TRACT INFLAMMATION
     Dates: start: 19850901, end: 20000101
  2. PREDNISONE [Suspect]
     Indication: LUNG DISORDER
     Dates: start: 19850901, end: 20000101

REACTIONS (1)
  - ASEPTIC NECROSIS BONE [None]
